FAERS Safety Report 8336947-3 (Version None)
Quarter: 2012Q2

REPORT INFORMATION
  Report Type: 
  Country: None (occurrence: None)
  Receive Date: 20120504
  Receipt Date: 20120229
  Transmission Date: 20120825
  Serious: No
  Sender: FDA-Public Use
  Company Number: US-GLAXOSMITHKLINE-A0967946A

PATIENT
  Age: 70 Year
  Sex: Female

DRUGS (6)
  1. VITAMIN [Concomitant]
  2. HORIZANT [Suspect]
     Indication: NEURALGIA
     Dosage: 1200MG PER DAY
     Route: 048
     Dates: start: 20120201
  3. VITAMIN D [Concomitant]
  4. CALCIUM [Concomitant]
  5. ASPIRIN [Concomitant]
  6. IBUPROFEN [Concomitant]

REACTIONS (2)
  - MENTAL IMPAIRMENT [None]
  - DIZZINESS [None]
